FAERS Safety Report 5075812-4 (Version None)
Quarter: 2006Q3

REPORT INFORMATION
  Report Type: 
  Country: None (occurrence: None)
  Receive Date: 20060809
  Receipt Date: 20060731
  Transmission Date: 20061208
  Serious: Yes (Hospitalization)
  Sender: FDA-Public Use
  Company Number: FR-GLAXOSMITHKLINE-B0432617A

PATIENT
  Age: 32 Year
  Sex: Female

DRUGS (5)
  1. COMBIVIR [Suspect]
     Indication: HIV INFECTION
     Dosage: 2TAB PER DAY
     Route: 048
     Dates: start: 19990101, end: 20060601
  2. DEPAKENE [Suspect]
     Indication: CONVULSION
     Dosage: 500MG TWICE PER DAY
     Route: 048
     Dates: start: 20050215
  3. TELZIR [Concomitant]
     Indication: HIV INFECTION
     Dosage: 700MG TWICE PER DAY
     Route: 048
     Dates: start: 19990115, end: 20060601
  4. NORVIR [Concomitant]
     Indication: HIV INFECTION
     Dosage: 100MG TWICE PER DAY
     Route: 048
     Dates: start: 19990101, end: 20060601
  5. PREVISCAN [Concomitant]
     Dosage: 1.25TAB PER DAY
     Route: 048
     Dates: start: 20051201

REACTIONS (9)
  - ABDOMINAL PAIN [None]
  - ANAEMIA MACROCYTIC [None]
  - ASTHENIA [None]
  - CONVULSION [None]
  - COUGH [None]
  - DIARRHOEA [None]
  - DRUG INTERACTION [None]
  - HEADACHE [None]
  - PYREXIA [None]
